FAERS Safety Report 8335388-2 (Version None)
Quarter: 2012Q2

REPORT INFORMATION
  Report Type: 
  Country: None (occurrence: None)
  Receive Date: 20120503
  Receipt Date: 20120427
  Transmission Date: 20120825
  Serious: Yes (Hospitalization)
  Sender: FDA-Public Use
  Company Number: JP-MERCK-1108USA00786

PATIENT

DRUGS (2)
  1. JANUVIA [Suspect]
     Route: 048
  2. SITAGLIPTIN PHOSPHATE [Suspect]
     Route: 065

REACTIONS (2)
  - CONDITION AGGRAVATED [None]
  - HEPATIC ENZYME INCREASED [None]
